FAERS Safety Report 8551532-6 (Version None)
Quarter: 2012Q3

REPORT INFORMATION
  Report Type: 
  Country: None (occurrence: None)
  Receive Date: 20120730
  Receipt Date: 20120724
  Transmission Date: 20120928
  Serious: Yes (Other)
  Sender: FDA-Public Use
  Company Number: US-ROCHE-783984

PATIENT
  Sex: Male
  Weight: 70.37 kg

DRUGS (1)
  1. ACCUTANE [Suspect]
     Indication: ACNE
     Route: 065
     Dates: start: 19991101, end: 20000401

REACTIONS (5)
  - INFLAMMATORY BOWEL DISEASE [None]
  - DIZZINESS [None]
  - COLITIS ULCERATIVE [None]
  - SOMNOLENCE [None]
  - STRESS [None]
